FAERS Safety Report 12317713 (Version 1)
Quarter: 2016Q2

REPORT INFORMATION
  Report Type: Spontaneous
  Country: BR (occurrence: BR)
  Receive Date: 20160429
  Receipt Date: 20160429
  Transmission Date: 20160815
  Serious: Yes (Hospitalization, Other)
  Sender: FDA-Public Use
  Company Number: BR-TEVA-654379ISR

PATIENT
  Age: 66 Year
  Sex: Male
  Weight: 60 kg

DRUGS (5)
  1. OMEPRAZOLE. [Concomitant]
     Active Substance: OMEPRAZOLE
     Dosage: 20 MILLIGRAM DAILY;
  2. TIORFAN [Concomitant]
     Active Substance: RACECADOTRIL
     Dosage: 40 MILLIGRAM DAILY;
  3. XELODA [Suspect]
     Active Substance: CAPECITABINE
     Indication: COLON CANCER
     Dosage: 3000 MILLIGRAM DAILY; 6 TABLETS OF 500 MG PER DAY FROM DAY1 TO DAY 14
     Route: 048
     Dates: start: 20160115, end: 20160314
  4. BROMOPRIDE [Concomitant]
     Active Substance: BROMOPRIDE
     Dosage: 30 MILLIGRAM DAILY;
  5. TEVAOXALI [Suspect]
     Active Substance: OXALIPLATIN
     Indication: COLON CANCER
     Dosage: 8.1615 MILLIGRAM DAILY;
     Route: 042
     Dates: start: 20160115, end: 20160314

REACTIONS (8)
  - Renal impairment [Recovered/Resolved]
  - Gastrointestinal stoma complication [Recovered/Resolved]
  - Metabolic disorder [Recovered/Resolved]
  - Dehydration [Recovered/Resolved]
  - Disorientation [Recovered/Resolved]
  - Electrolyte imbalance [Recovered/Resolved]
  - Metabolic acidosis [Recovered/Resolved]
  - Colitis [Recovered/Resolved]

NARRATIVE: CASE EVENT DATE: 20160331
